FAERS Safety Report 9459036 (Version 1)
Quarter: 2013Q3

REPORT INFORMATION
  Report Type: Spontaneous
  Country: BE (occurrence: BE)
  Receive Date: 20130814
  Receipt Date: 20130814
  Transmission Date: 20140515
  Serious: Yes (Hospitalization)
  Sender: FDA-Public Use
  Company Number: BE-B.I. PHARMACEUTICALS,INC./RIDGEFIELD-2013-BL-00365BL

PATIENT
  Age: 78 Year
  Sex: Female

DRUGS (10)
  1. PRADAXA [Suspect]
     Indication: ATRIAL FIBRILLATION
     Dosage: 220 MG
     Dates: start: 201307
  2. XARELTO [Concomitant]
  3. CLEXANE [Concomitant]
  4. THYROXINE [Concomitant]
  5. BELSAR [Concomitant]
  6. ASAFLOW [Concomitant]
  7. CORDARONE [Concomitant]
  8. PRAVASTATINE [Concomitant]
  9. TEMESTA [Concomitant]
  10. ZALDIAR [Concomitant]

REACTIONS (2)
  - Accelerated hypertension [Recovered/Resolved]
  - Headache [Recovered/Resolved]
